FAERS Safety Report 5017251-8 (Version None)
Quarter: 2006Q2

REPORT INFORMATION
  Report Type: 
  Country: None (occurrence: None)
  Receive Date: 20060414
  Receipt Date: 20060303
  Transmission Date: 20061013
  Serious: No
  Sender: FDA-Public Use
  Company Number: 2006SP001054

PATIENT
  Age: 86 Year
  Sex: Female
  Weight: 73.0291 kg

DRUGS (7)
  1. LUNESTA [Suspect]
     Indication: INSOMNIA
     Dosage: 2 MG;HS;ORAL
     Route: 048
     Dates: start: 20060302
  2. XANAX [Concomitant]
  3. WARFARIN SODIUM [Concomitant]
  4. COREG [Concomitant]
  5. SIMVASTATIN [Concomitant]
  6. PREVACID [Concomitant]
  7. FOLIC ACID [Concomitant]

REACTIONS (4)
  - DIZZINESS [None]
  - DRUG INEFFECTIVE [None]
  - DYSGEUSIA [None]
  - MIDDLE INSOMNIA [None]
